FAERS Safety Report 11797903 (Version 2)
Quarter: 2015Q4

REPORT INFORMATION
  Report Type: Spontaneous
  Country: US (occurrence: US)
  Receive Date: 20151203
  Receipt Date: 20151215
  Transmission Date: 20160305
  Serious: Yes (Other)
  Sender: FDA-Public Use
  Company Number: US-JNJFOC-20151200181

PATIENT
  Sex: Female
  Weight: 40.37 kg

DRUGS (5)
  1. LIDOCAINE. [Concomitant]
     Active Substance: LIDOCAINE
     Indication: GENITAL PAIN
     Route: 061
  2. DURAGESIC [Suspect]
     Active Substance: FENTANYL
     Indication: VULVOVAGINAL PAIN
     Route: 062
     Dates: start: 2008, end: 2010
  3. SEROQUEL [Concomitant]
     Active Substance: QUETIAPINE FUMARATE
     Indication: SLEEP DISORDER
     Dosage: 25 MG/TAKES HALF A PILL AT BEDTIME
     Route: 048
     Dates: start: 2007
  4. ARMOUR THYROID [Concomitant]
     Active Substance: THYROID, PORCINE\THYROID, UNSPECIFIED
     Indication: HYPOTHYROIDISM
     Route: 048
  5. CLONAZEPAM. [Concomitant]
     Active Substance: CLONAZEPAM
     Indication: PRODUCT USED FOR UNKNOWN INDICATION
     Dosage: AT BEDTIME
     Route: 048

REACTIONS (2)
  - Adverse event [Unknown]
  - Multiple sclerosis [Not Recovered/Not Resolved]
